FAERS Safety Report 25954638 (Version 1)
Quarter: 2025Q4

REPORT INFORMATION
  Report Type: Spontaneous
  Country: EU (occurrence: EU)
  Receive Date: 20251024
  Receipt Date: 20251024
  Transmission Date: 20260117
  Serious: Yes (Other)
  Sender: ROCHE
  Company Number: EU-002147023-NVSC2025HR162031

PATIENT
  Age: 39 Year
  Sex: Female

DRUGS (1)
  1. OMALIZUMAB [Suspect]
     Active Substance: OMALIZUMAB
     Indication: Urticaria
     Dosage: 300 MG, QMO
     Route: 058

REACTIONS (3)
  - Dirofilariasis [Unknown]
  - Foreign body sensation in eyes [Unknown]
  - Skin mass [Unknown]
